FAERS Safety Report 8511207-6 (Version None)
Quarter: 2012Q3

REPORT INFORMATION
  Report Type: 
  Country: None (occurrence: None)
  Receive Date: 20120716
  Receipt Date: 20120710
  Transmission Date: 20120928
  Serious: Yes (Other)
  Sender: FDA-Public Use
  Company Number: IE-BAYER-2012-024229

PATIENT
  Age: 40 Year
  Sex: Female

DRUGS (2)
  1. CRESTOR [Concomitant]
     Indication: HYPERCHOLESTEROLAEMIA
     Dosage: 10 MG, UNK
  2. MIRENA [Suspect]
     Dosage: UNK
     Route: 015
     Dates: start: 20110607

REACTIONS (5)
  - DEVICE DISLOCATION [None]
  - CAESAREAN SECTION [None]
  - PREGNANCY WITH CONTRACEPTIVE DEVICE [None]
  - HYPOMENORRHOEA [None]
  - AMENORRHOEA [None]
